FAERS Safety Report 5785941-5 (Version None)
Quarter: 2008Q2

REPORT INFORMATION
  Report Type: 
  Country: None (occurrence: None)
  Receive Date: 20080620
  Receipt Date: 20080620
  Transmission Date: 20081010
  Serious: Yes (Death)
  Sender: FDA-Public Use
  Company Number: None

PATIENT
  Sex: Male
  Weight: 127.9144 kg

DRUGS (1)
  1. ALEVE [Suspect]
     Dosage: ONE TIME ONLY PO
     Route: 048
     Dates: start: 20080405, end: 20080405

REACTIONS (4)
  - ANAPHYLACTIC REACTION [None]
  - DEPRESSED LEVEL OF CONSCIOUSNESS [None]
  - DRUG LEVEL INCREASED [None]
  - LARYNGEAL OEDEMA [None]
